FAERS Safety Report 17039799 (Version 2)
Quarter: 2020Q1

REPORT INFORMATION
  Report Type: Report from Study
  Country: US (occurrence: US)
  Receive Date: 20191116
  Receipt Date: 20200305
  Transmission Date: 20200409
  Serious: No
  Sender: FDA-Public Use
  Company Number: NVSC2019US037436

PATIENT
  Age: 21 Year
  Sex: Female

DRUGS (3)
  1. EVEROLIMUS. [Suspect]
     Active Substance: EVEROLIMUS
     Indication: PRODUCT USED FOR UNKNOWN INDICATION
     Dosage: 5 MG, QD
     Route: 048
     Dates: start: 202002
  2. AFINITOR [Suspect]
     Active Substance: EVEROLIMUS
     Indication: ASTROCYTOMA, LOW GRADE
     Dosage: 5 MG, OT (ALTERNATING WITH 7.5 MG DOSE)
     Route: 048
     Dates: start: 20110603
  3. AFINITOR [Suspect]
     Active Substance: EVEROLIMUS
     Dosage: 5 MG, QD
     Route: 048
     Dates: start: 20110613, end: 202002

REACTIONS (2)
  - Pharyngitis streptococcal [Unknown]
  - Infection [Unknown]

NARRATIVE: CASE EVENT DATE: 20200218
